FAERS Safety Report 26151409 (Version 1)
Quarter: 2025Q4

REPORT INFORMATION
  Report Type: Report from Study
  Country: CN (occurrence: CN)
  Receive Date: 20251212
  Receipt Date: 20251212
  Transmission Date: 20260118
  Serious: Yes (Other)
  Sender: ROCHE
  Company Number: CN-ROCHE-10000454926

PATIENT
  Age: 51 Year
  Sex: Female

DRUGS (14)
  1. GLOFITAMAB [Suspect]
     Active Substance: GLOFITAMAB
     Indication: Central nervous system lymphoma
     Route: 042
  2. GLOFITAMAB [Suspect]
     Active Substance: GLOFITAMAB
     Indication: Central nervous system lymphoma
  3. MABTHERA [Concomitant]
     Active Substance: RITUXIMAB
     Route: 042
  4. THIOTEPA [Concomitant]
     Active Substance: THIOTEPA
  5. METHOTREXATE [Concomitant]
     Active Substance: METHOTREXATE
  6. ORELABRUTINIB [Concomitant]
     Active Substance: ORELABRUTINIB
  7. LENALIDOMIDE [Concomitant]
     Active Substance: LENALIDOMIDE
  8. OBINUTUZUMAB [Concomitant]
     Active Substance: OBINUTUZUMAB
     Route: 042
  9. ACETAMINOPHEN [Concomitant]
     Active Substance: ACETAMINOPHEN
     Route: 048
  10. ASPIRIN [Concomitant]
     Active Substance: ASPIRIN
  11. CYCLOPHOSPHAMIDE [Concomitant]
     Active Substance: CYCLOPHOSPHAMIDE
  12. VINCRISTINE [Concomitant]
     Active Substance: VINCRISTINE
  13. DOXORUBICIN [Concomitant]
     Active Substance: DOXORUBICIN
  14. PREDNISONE [Concomitant]
     Active Substance: PREDNISONE

REACTIONS (4)
  - Immune effector cell-associated neurotoxicity syndrome [Recovered/Resolved]
  - Cytokine release syndrome [Recovered/Resolved]
  - Off label use [Unknown]
  - Myelosuppression [Recovered/Resolved]
